FAERS Safety Report 6719530-2 (Version None)
Quarter: 2010Q2

REPORT INFORMATION
  Report Type: 
  Country: None (occurrence: None)
  Receive Date: 20100507
  Receipt Date: 20100430
  Transmission Date: 20101027
  Serious: Yes (Other)
  Sender: FDA-Public Use
  Company Number: 011231

PATIENT
  Age: 84 Year
  Sex: Female
  Weight: 50 kg

DRUGS (1)
  1. KEPPRA [Suspect]
     Indication: CONVULSION
     Dosage: (2000 MG ORAL)
     Route: 048
     Dates: start: 20100303, end: 20100416

REACTIONS (1)
  - PANCYTOPENIA [None]
